FAERS Safety Report 5325424-X (Version None)
Quarter: 2007Q2

REPORT INFORMATION
  Report Type: 
  Country: None (occurrence: None)
  Receive Date: 20070515
  Receipt Date: 20070503
  Transmission Date: 20071010
  Serious: Yes (Hospitalization)
  Sender: FDA-Public Use
  Company Number: US-AMGEN-US223150

PATIENT
  Sex: Male
  Weight: 88.5 kg

DRUGS (7)
  1. PROCRIT [Suspect]
     Indication: ANAEMIA OF MALIGNANT DISEASE
     Route: 065
     Dates: end: 20050901
  2. WARFARIN SODIUM [Concomitant]
     Route: 065
  3. TOPROL-XL [Concomitant]
     Route: 065
  4. CARDIZEM [Concomitant]
     Route: 065
  5. FISH OIL [Concomitant]
     Route: 065
  6. VITAMIN CAP [Concomitant]
     Route: 065
  7. CALCIUM CHLORIDE [Concomitant]
     Route: 065

REACTIONS (2)
  - BLADDER DISORDER [None]
  - SLEEP TALKING [None]
